FAERS Safety Report 4279893-7 (Version None)
Quarter: 2004Q1

REPORT INFORMATION
  Report Type: 
  Country: None (occurrence: None)
  Receive Date: 20040127
  Receipt Date: 20040127
  Transmission Date: 20041129
  Serious: No
  Sender: FDA-Public Use
  Company Number: None

PATIENT
  Age: 48 Year
  Sex: Female
  Weight: 77.1115 kg

DRUGS (6)
  1. SYNTHROID [Suspect]
     Indication: HYPOTHYROIDISM
     Dosage: 175 MCG QD ORAL
     Route: 048
     Dates: start: 19850101, end: 20040126
  2. ACIPHEX [Suspect]
     Indication: GASTROOESOPHAGEAL REFLUX DISEASE
     Dosage: 20 MG BID ORAL
     Route: 048
     Dates: start: 20030901, end: 20031201
  3. CALCIUM [Concomitant]
  4. MULTI-VITAMINS [Concomitant]
  5. ALLEGRA [Concomitant]
  6. VITAMIN C [Concomitant]

REACTIONS (5)
  - BLOOD THYROID STIMULATING HORMONE DECREASED [None]
  - DRUG INTERACTION [None]
  - FATIGUE [None]
  - GASTROOESOPHAGEAL REFLUX DISEASE [None]
  - SOMNOLENCE [None]
